FAERS Safety Report 7039542-1 (Version None)
Quarter: 2010Q4

REPORT INFORMATION
  Report Type: 
  Country: None (occurrence: None)
  Receive Date: 20101012
  Receipt Date: 20101004
  Transmission Date: 20110411
  Serious: Yes (Hospitalization)
  Sender: FDA-Public Use
  Company Number: US-NAPPMUNDI-USA-2010-0048614

PATIENT
  Sex: Female

DRUGS (2)
  1. OXYCONTIN [Suspect]
     Indication: CANCER PAIN
     Dosage: 120 MG, QID
     Route: 048
     Dates: start: 20100820
  2. OXYCONTIN [Concomitant]
     Indication: CANCER PAIN
     Dosage: UNK
     Route: 048
     Dates: start: 19870101

REACTIONS (5)
  - DRUG INEFFECTIVE [None]
  - HOSPITALISATION [None]
  - PAIN [None]
  - RETCHING [None]
  - VOMITING [None]
